FAERS Safety Report 7612176-3 (Version None)
Quarter: 2011Q3

REPORT INFORMATION
  Report Type: 
  Country: None (occurrence: None)
  Receive Date: 20110715
  Receipt Date: 20110706
  Transmission Date: 20111222
  Serious: Yes (Other)
  Sender: FDA-Public Use
  Company Number: CN-ASTRAZENECA-2011SE40171

PATIENT

DRUGS (3)
  1. LIDOCAINE [Suspect]
     Route: 050
  2. SODIUM CHLORIDE [Concomitant]
  3. ROPIVACAINE HYDROCHLORIDE [Suspect]

REACTIONS (1)
  - HORNER'S SYNDROME [None]
